FAERS Safety Report 14104033 (Version 1)
Quarter: 2017Q4

REPORT INFORMATION
  Report Type: Spontaneous
  Country: US (occurrence: US)
  Receive Date: 20171018
  Receipt Date: 20171018
  Transmission Date: 20180321
  Serious: Yes (Other)
  Sender: FDA-Public Use
  Company Number: US-SA-2017SA200474

PATIENT
  Age: 65 Year
  Sex: Female

DRUGS (2)
  1. PLAVIX [Suspect]
     Active Substance: CLOPIDOGREL BISULFATE
     Indication: STENT PLACEMENT
     Route: 048
     Dates: start: 2006, end: 2015
  2. ASPIRIN. [Concomitant]
     Active Substance: ASPIRIN
     Indication: STENT PLACEMENT
     Route: 065
     Dates: start: 2006

REACTIONS (2)
  - Atrial fibrillation [Unknown]
  - Cerebellar haemorrhage [Unknown]

NARRATIVE: CASE EVENT DATE: 2015
